FAERS Safety Report 26153433 (Version 1)
Quarter: 2025Q4

REPORT INFORMATION
  Report Type: Spontaneous
  Country: US (occurrence: US)
  Receive Date: 20251214
  Receipt Date: 20251214
  Transmission Date: 20260118
  Serious: No
  Sender: Atnahs Healthcare
  Company Number: US-ATNAHS-ATNAHS20250604492

PATIENT
  Sex: Female

DRUGS (2)
  1. VALIUM [Suspect]
     Active Substance: DIAZEPAM
     Indication: Product used for unknown indication
  2. VABYSMO [Suspect]
     Active Substance: FARICIMAB-SVOA
     Indication: Product used for unknown indication

REACTIONS (2)
  - Hypersensitivity [Unknown]
  - Product use issue [Unknown]
